FAERS Safety Report 20788603 (Version 1)
Quarter: 2022Q2

REPORT INFORMATION
  Report Type: Spontaneous
  Country: US (occurrence: None)
  Receive Date: 20220504
  Receipt Date: 20220504
  Transmission Date: 20220721
  Serious: No
  Sender: FDA-Public Use
  Company Number: None

PATIENT
  Age: 42 Year
  Sex: Female
  Weight: 69.75 kg

DRUGS (1)
  1. PAXLOVID [Suspect]
     Active Substance: NIRMATRELVIR\RITONAVIR
     Indication: COVID-19

REACTIONS (6)
  - Faeces discoloured [None]
  - Abdominal pain [None]
  - Hypertension [None]
  - Chills [None]
  - Hyperhidrosis [None]
  - Haemoptysis [None]

NARRATIVE: CASE EVENT DATE: 20220502
